FAERS Safety Report 8138263-1 (Version None)
Quarter: 2012Q1

REPORT INFORMATION
  Report Type: 
  Country: None (occurrence: None)
  Receive Date: 20120215
  Receipt Date: 20120213
  Transmission Date: 20120608
  Serious: No
  Sender: FDA-Public Use
  Company Number: US-B.I. PHARMACEUTICALS,INC./RIDGEFIELD-2012-BP-02815BP

PATIENT
  Age: 67 Year
  Sex: Female

DRUGS (5)
  1. CYMBALTA [Concomitant]
     Indication: MEMORY IMPAIRMENT
  2. LEVOTHYROXINE SODIUM [Concomitant]
     Indication: THYROID DISORDER
  3. MIRAPEX [Suspect]
     Indication: PARKINSON'S DISEASE
     Dosage: 4 MG
     Route: 048
     Dates: start: 20020101
  4. CARBOLEVO [Concomitant]
     Indication: PARKINSON'S DISEASE
  5. METROPOLOL/HCT [Concomitant]
     Indication: HYPERTENSION

REACTIONS (4)
  - COMPULSIVE SHOPPING [None]
  - SUDDEN ONSET OF SLEEP [None]
  - RENAL PAIN [None]
  - HALLUCINATION [None]
